FAERS Safety Report 24576555 (Version 1)
Quarter: 2024Q4

REPORT INFORMATION
  Report Type: Spontaneous
  Country: BE (occurrence: BE)
  Receive Date: 20241104
  Receipt Date: 20241104
  Transmission Date: 20250115
  Serious: Yes (Other)
  Sender: PFIZER
  Company Number: BE-PFIZER INC-PV202400140806

PATIENT
  Age: 92 Year
  Sex: Male

DRUGS (1)
  1. VYNDAQEL [Suspect]
     Active Substance: TAFAMIDIS MEGLUMINE
     Dosage: UNK
     Dates: start: 20231201, end: 20241025

REACTIONS (5)
  - Hallucination [Unknown]
  - Behaviour disorder [Unknown]
  - Memory impairment [Unknown]
  - Confusional state [Unknown]
  - Disorientation [Unknown]
